FAERS Safety Report 5098268-4 (Version None)
Quarter: 2006Q3

REPORT INFORMATION
  Report Type: 
  Country: None (occurrence: None)
  Receive Date: 20060906
  Receipt Date: 20060731
  Transmission Date: 20061208
  Serious: Yes (Hospitalization)
  Sender: FDA-Public Use
  Company Number: US-AMGEN-STX188451

PATIENT
  Sex: Male

DRUGS (1)
  1. ENBREL [Suspect]
     Indication: PSORIATIC ARTHROPATHY
     Route: 058
     Dates: start: 20050801

REACTIONS (6)
  - ANAL FISSURE [None]
  - ANAL STENOSIS [None]
  - BLADDER PERFORATION [None]
  - DIVERTICULITIS [None]
  - ENTEROVESICAL FISTULA [None]
  - HYPERTROPHY [None]
